FAERS Safety Report 7344131-5 (Version None)
Quarter: 2011Q1

REPORT INFORMATION
  Report Type: 
  Country: None (occurrence: None)
  Receive Date: 20110310
  Receipt Date: 20100625
  Transmission Date: 20110831
  Serious: No
  Sender: FDA-Public Use
  Company Number: A0867431A

PATIENT
  Sex: Female
  Weight: 72.7 kg

DRUGS (4)
  1. NICOTINE GUM 4MG UNKNOWN BRAND [Suspect]
     Route: 002
  2. CHROMIUM CHLORIDE [Concomitant]
  3. NICORETTE [Suspect]
     Route: 002
     Dates: start: 20050101, end: 20100201
  4. NICOTINE [Suspect]
     Route: 002

REACTIONS (4)
  - DIZZINESS [None]
  - NICOTINE DEPENDENCE [None]
  - NAUSEA [None]
  - ASTHENIA [None]
